FAERS Safety Report 17207514 (Version 1)
Quarter: 2019Q4

REPORT INFORMATION
  Report Type: Spontaneous
  Country: US (occurrence: US)
  Receive Date: 20191227
  Receipt Date: 20191227
  Transmission Date: 20200122
  Serious: Yes (Other)
  Sender: FDA-Public Use
  Company Number: NVSC2019US080213

PATIENT
  Age: 67 Year
  Sex: Male

DRUGS (3)
  1. INOTUZUMAB OZOGAMICIN [Concomitant]
     Active Substance: INOTUZUMAB OZOGAMICIN
     Indication: ACUTE LYMPHOCYTIC LEUKAEMIA
     Dosage: 0.8 MG/M2
     Route: 065
  2. INOTUZUMAB OZOGAMICIN [Concomitant]
     Active Substance: INOTUZUMAB OZOGAMICIN
     Dosage: 0.5 MG/M2
     Route: 065
  3. VORICONAZOLE. [Suspect]
     Active Substance: VORICONAZOLE
     Indication: ACUTE LYMPHOCYTIC LEUKAEMIA
     Dosage: UNK
     Route: 065

REACTIONS (2)
  - Product use in unapproved indication [Unknown]
  - Electrocardiogram QT interval [Unknown]
